FAERS Safety Report 6967610-9 (Version None)
Quarter: 2010Q3

REPORT INFORMATION
  Report Type: 
  Country: None (occurrence: None)
  Receive Date: 20100907
  Receipt Date: 20100831
  Transmission Date: 20110219
  Serious: Yes (Hospitalization)
  Sender: FDA-Public Use
  Company Number: FR-BRISTOL-MYERS SQUIBB COMPANY-15264971

PATIENT
  Age: 43 Year
  Sex: Male

DRUGS (3)
  1. REYATAZ [Suspect]
     Indication: HIV INFECTION
     Route: 048
     Dates: start: 20060314, end: 20090602
  2. NORVIR [Suspect]
     Dates: start: 20060314
  3. KIVEXA [Suspect]
     Dates: start: 20060314

REACTIONS (1)
  - RENAL COLIC [None]
